FAERS Safety Report 6834085-X (Version None)
Quarter: 2010Q3

REPORT INFORMATION
  Report Type: 
  Country: None (occurrence: None)
  Receive Date: 20100712
  Receipt Date: 20070406
  Transmission Date: 20110219
  Serious: No
  Sender: FDA-Public Use
  Company Number: US-PFIZER INC-2007023057

PATIENT
  Sex: Male
  Weight: 71.21 kg

DRUGS (6)
  1. CHANTIX [Suspect]
     Indication: SMOKING CESSATION THERAPY
     Dates: start: 20070317, end: 20070401
  2. TRUVADA [Concomitant]
     Indication: HIV TEST POSITIVE
  3. VIRAMUNE [Concomitant]
     Indication: HIV TEST POSITIVE
  4. DETROL LA [Concomitant]
  5. ALLEGRA [Concomitant]
  6. ETODOLAC [Concomitant]

REACTIONS (6)
  - ABDOMINAL PAIN UPPER [None]
  - ABNORMAL DREAMS [None]
  - DYSGEUSIA [None]
  - INCREASED APPETITE [None]
  - NAUSEA [None]
  - WEIGHT INCREASED [None]
